FAERS Safety Report 16109127 (Version 1)
Quarter: 2019Q1

REPORT INFORMATION
  Report Type: Spontaneous
  Country: US (occurrence: US)
  Receive Date: 20190323
  Receipt Date: 20190323
  Transmission Date: 20190418
  Serious: No
  Sender: FDA-Public Use
  Company Number: US-THERAPEUTICSMD-2019TMD00165

PATIENT
  Age: 58 Year
  Sex: Female
  Weight: 63.49 kg

DRUGS (1)
  1. IMVEXXY [Suspect]
     Active Substance: ESTRADIOL
     Indication: DYSPAREUNIA
     Dosage: 10 ?G, 2X/DAY; ONE IN MORNING AND ONE AT NIGHT
     Route: 067
     Dates: start: 20190206, end: 20190208

REACTIONS (2)
  - Eye pain [Recovered/Resolved]
  - Off label use [Recovered/Resolved]

NARRATIVE: CASE EVENT DATE: 201902
